FAERS Safety Report 18580399 (Version 2)
Quarter: 2020Q4

REPORT INFORMATION
  Report Type: Spontaneous
  Country: US (occurrence: US)
  Receive Date: 20201204
  Receipt Date: 20201223
  Transmission Date: 20210114
  Serious: No
  Sender: FDA-Public Use
  Company Number: US-PFIZER INC-2020473565

PATIENT
  Age: 74 Year
  Sex: Female
  Weight: 70.7 kg

DRUGS (1)
  1. ZIRABEV [Suspect]
     Active Substance: BEVACIZUMAB-BVZR
     Indication: METASTATIC NEOPLASM
     Dosage: 1000 MG, CYCLIC, (1000MG INTRAVENOUSLY EVERY 21 DAYS)
     Route: 042
     Dates: start: 20201125

REACTIONS (2)
  - Therapeutic response unexpected [Unknown]
  - Off label use [Unknown]
